FAERS Safety Report 17866443 (Version 1)
Quarter: 2020Q2

REPORT INFORMATION
  Report Type: Spontaneous
  Country: CN (occurrence: CN)
  Receive Date: 20200605
  Receipt Date: 20200605
  Transmission Date: 20200714
  Serious: Yes (Other)
  Sender: FDA-Public Use
  Company Number: CN-ASPEN-GLO2020CN005523

PATIENT
  Age: 23 Month
  Sex: Male
  Weight: 9 kg

DRUGS (2)
  1. BUSULFAN. [Suspect]
     Active Substance: BUSULFAN
     Indication: BONE MARROW CONDITIONING REGIMEN
     Dosage: 0.8 MG/KG, 5-7 DAYS BEFORE TRANSPLANT
     Route: 065
  2. CYCLOPHOSPHAMIDE. [Suspect]
     Active Substance: CYCLOPHOSPHAMIDE
     Indication: BONE MARROW CONDITIONING REGIMEN
     Dosage: 50 MG/KG.D 2-3 DAYS BEFORE TRANSPLANT
     Route: 065

REACTIONS (4)
  - Product use in unapproved indication [Unknown]
  - Pneumonia fungal [Recovered/Resolved]
  - Rotavirus infection [Recovered/Resolved]
  - Sepsis [Recovered/Resolved]
